FAERS Safety Report 18493611 (Version 9)
Quarter: 2025Q2

REPORT INFORMATION
  Report Type: Report from Study
  Country: US (occurrence: US)
  Receive Date: 20201112
  Receipt Date: 20250630
  Transmission Date: 20250716
  Serious: Yes (Other)
  Sender: TAKEDA
  Company Number: US-SHIRE-US201916759

PATIENT
  Age: 43 Year
  Sex: Female
  Weight: 66 kg

DRUGS (44)
  1. HUMAN IMMUNOGLOBULIN G [Suspect]
     Active Substance: HUMAN IMMUNOGLOBULIN G
     Indication: Immunodeficiency common variable
     Dosage: 10 GRAM, 1/WEEK
  2. HUMAN IMMUNOGLOBULIN G [Suspect]
     Active Substance: HUMAN IMMUNOGLOBULIN G
     Indication: Juvenile idiopathic arthritis
  3. HUMAN IMMUNOGLOBULIN G [Suspect]
     Active Substance: HUMAN IMMUNOGLOBULIN G
     Dosage: 20 GRAM, Q2WEEKS
  4. HUMAN IMMUNOGLOBULIN G [Suspect]
     Active Substance: HUMAN IMMUNOGLOBULIN G
     Dosage: 20 GRAM, Q2WEEKS
     Dates: start: 20190621
  5. CUVITRU [Suspect]
     Active Substance: HUMAN IMMUNOGLOBULIN G
     Indication: Primary immunodeficiency syndrome
     Dosage: 10 GRAM, 1/WEEK
  6. GAMMAGARD LIQUID [Suspect]
     Active Substance: HUMAN IMMUNOGLOBULIN G
     Indication: Primary immunodeficiency syndrome
     Dosage: 10 GRAM, 1/WEEK
  7. GAMMAGARD LIQUID [Suspect]
     Active Substance: HUMAN IMMUNOGLOBULIN G
     Indication: Immunodeficiency common variable
  8. ACETAMINOPHEN [Concomitant]
     Active Substance: ACETAMINOPHEN
  9. DEXAMETHASONE [Concomitant]
     Active Substance: DEXAMETHASONE
  10. DIPHENHYDRAMINE [Concomitant]
     Active Substance: DIPHENHYDRAMINE
  11. HEPARIN [Concomitant]
     Active Substance: HEPARIN SODIUM
  12. LIDOCAINE [Concomitant]
     Active Substance: LIDOCAINE
  13. LACTATED RINGERS SOLUTION [Concomitant]
     Active Substance: CALCIUM CHLORIDE\POTASSIUM CHLORIDE\SODIUM CHLORIDE\SODIUM LACTATE
  14. SODIUM CHLORIDE [Concomitant]
     Active Substance: SODIUM CHLORIDE
  15. EPINEPHRINE [Concomitant]
     Active Substance: EPINEPHRINE
  16. GYNAZOLE-1 [Concomitant]
     Active Substance: BUTOCONAZOLE NITRATE
  17. AZELASTINE [Concomitant]
     Active Substance: AZELASTINE
  18. CARAFATE [Concomitant]
     Active Substance: SUCRALFATE
  19. D3 plus darss [Concomitant]
  20. SINGULAIR [Concomitant]
     Active Substance: MONTELUKAST SODIUM
  21. SOLU-MEDROL [Concomitant]
     Active Substance: METHYLPREDNISOLONE SODIUM SUCCINATE
  22. DIFLUCAN [Concomitant]
     Active Substance: FLUCONAZOLE
  23. NORCO [Concomitant]
     Active Substance: ACETAMINOPHEN\HYDROCODONE BITARTRATE
  24. CYANOCOBALAMIN [Concomitant]
     Active Substance: CYANOCOBALAMIN
  25. NEXIUM [Concomitant]
     Active Substance: ESOMEPRAZOLE MAGNESIUM
  26. SERTRALINE [Concomitant]
     Active Substance: SERTRALINE HYDROCHLORIDE
  27. ZYRTEC [Concomitant]
     Active Substance: CETIRIZINE HYDROCHLORIDE
  28. TERCONAZOLE [Concomitant]
     Active Substance: TERCONAZOLE
  29. PROMETHAZINE [Concomitant]
     Active Substance: PROMETHAZINE HYDROCHLORIDE
  30. MINIVELLE [Concomitant]
     Active Substance: ESTRADIOL
  31. TYLENOL [Concomitant]
     Active Substance: ACETAMINOPHEN
  32. COLD [Concomitant]
     Active Substance: ACETAMINOPHEN\CHLORPHENIRAMINE\DEXTROMETHORPHAN\PHENYLEPHRINE
  33. Congest [Concomitant]
  34. CEPHALEXIN [Concomitant]
     Active Substance: CEPHALEXIN
  35. TIZANIDINE HYDROCHLORIDE [Concomitant]
     Active Substance: TIZANIDINE HYDROCHLORIDE
  36. BYSTOLIC [Concomitant]
     Active Substance: NEBIVOLOL HYDROCHLORIDE
  37. PEPCID [Concomitant]
     Active Substance: FAMOTIDINE
  38. KLONOPIN [Concomitant]
     Active Substance: CLONAZEPAM
  39. AZITHROMYCIN [Concomitant]
     Active Substance: AZITHROMYCIN
  40. AZELASTINE HYDROCHLORIDE [Concomitant]
     Active Substance: AZELASTINE HYDROCHLORIDE
  41. VIVELLE [Concomitant]
     Active Substance: ESTRADIOL
  42. PROMETHAZINE HYDROCHLORIDE [Concomitant]
     Active Substance: PROMETHAZINE HYDROCHLORIDE
  43. DIPHENHYDRAMINE HYDROCHLORIDE [Concomitant]
     Active Substance: DIPHENHYDRAMINE HYDROCHLORIDE
  44. SERTRALINE HYDROCHLORIDE [Concomitant]
     Active Substance: SERTRALINE HYDROCHLORIDE

REACTIONS (26)
  - Breast cancer [Unknown]
  - Kidney infection [Unknown]
  - Impaired gastric emptying [Unknown]
  - Rheumatoid arthritis [Unknown]
  - Illness [Unknown]
  - Fluid retention [Unknown]
  - Arthritis [Unknown]
  - COVID-19 [Recovering/Resolving]
  - Weight decreased [Unknown]
  - Injection site bruising [Unknown]
  - Incorrect product administration duration [Unknown]
  - Inability to afford medication [Unknown]
  - Viral infection [Unknown]
  - Gastroenteritis viral [Unknown]
  - Medication error [Not Recovered/Not Resolved]
  - Needle issue [Not Recovered/Not Resolved]
  - Injection site erythema [Unknown]
  - Vertigo [Unknown]
  - Pain [Unknown]
  - Blood pressure increased [Unknown]
  - Pruritus [Unknown]
  - Migraine [Unknown]
  - Hypertension [Unknown]
  - Nausea [Unknown]
  - Headache [Unknown]
  - Decreased appetite [Unknown]

NARRATIVE: CASE EVENT DATE: 20210219
